FAERS Safety Report 5016758-7 (Version None)
Quarter: 2006Q2

REPORT INFORMATION
  Report Type: 
  Country: None (occurrence: None)
  Receive Date: 20060525
  Receipt Date: 20060517
  Transmission Date: 20061013
  Serious: Yes (Life-Threatening)
  Sender: FDA-Public Use
  Company Number: REM_00205_2006

PATIENT
  Age: 36 Year
  Sex: Female

DRUGS (4)
  1. TREPROSTINIL [Suspect]
     Indication: PULMONARY HYPERTENSION
     Dosage: 118 MG/KG/MIN IV
     Route: 042
     Dates: start: 20060123
  2. BOSENTAN [Concomitant]
  3. PHENPROCOUMON [Concomitant]
  4. FUROSEMIDE [Concomitant]

REACTIONS (6)
  - DEVICE FAILURE [None]
  - INCORRECT DOSE ADMINISTERED [None]
  - INCORRECT DRUG ADMINISTRATION DURATION [None]
  - LOSS OF CONSCIOUSNESS [None]
  - OVERDOSE [None]
  - PALPITATIONS [None]
